FAERS Safety Report 4866409-7 (Version None)
Quarter: 2005Q4

REPORT INFORMATION
  Report Type: 
  Country: None (occurrence: None)
  Receive Date: 20051227
  Receipt Date: 20051005
  Transmission Date: 20060501
  Serious: Yes (Hospitalization, Other)
  Sender: FDA-Public Use
  Company Number: US-MERCK-0510USA05379

PATIENT
  Age: 79 Year
  Sex: Female

DRUGS (2)
  1. VIOXX [Suspect]
     Indication: ARTHRITIS
     Route: 048
     Dates: start: 20031029, end: 20040930
  2. TRIAMTERENE [Concomitant]
     Route: 065

REACTIONS (3)
  - CARDIOVASCULAR DISORDER [None]
  - CORONARY ARTERY DISEASE [None]
  - TRANSIENT ISCHAEMIC ATTACK [None]
